FAERS Safety Report 14960984 (Version 1)
Quarter: 2018Q2

REPORT INFORMATION
  Report Type: Spontaneous
  Country: FR (occurrence: FR)
  Receive Date: 20180531
  Receipt Date: 20180531
  Transmission Date: 20180711
  Serious: Yes (Hospitalization)
  Sender: FDA-Public Use
  Company Number: FR-BIOGEN-2018BI00588793

PATIENT
  Age: 11 Month
  Sex: Female

DRUGS (5)
  1. SPINRAZA [Suspect]
     Active Substance: NUSINERSEN
     Indication: SPINAL MUSCULAR ATROPHY
     Route: 037
     Dates: start: 20180426
  2. EMLA [Concomitant]
     Active Substance: LIDOCAINE\PRILOCAINE
     Indication: PRODUCT USED FOR UNKNOWN INDICATION
     Dosage: LOCAL
     Route: 065
     Dates: start: 20180426
  3. KALINOX [Concomitant]
     Active Substance: NITROUS OXIDE
     Indication: PRODUCT USED FOR UNKNOWN INDICATION
     Route: 065
     Dates: start: 20180426
  4. EMLA [Concomitant]
     Active Substance: LIDOCAINE\PRILOCAINE
     Dosage: PATCH
     Route: 065
     Dates: start: 20180524
  5. SUFENTA [Concomitant]
     Active Substance: SUFENTANIL CITRATE
     Indication: PRODUCT USED FOR UNKNOWN INDICATION
     Route: 065
     Dates: start: 20180524

REACTIONS (2)
  - Rhinovirus infection [Not Recovered/Not Resolved]
  - Respiratory failure [Not Recovered/Not Resolved]

NARRATIVE: CASE EVENT DATE: 20180504
